FAERS Safety Report 7634074-1 (Version None)
Quarter: 2011Q3

REPORT INFORMATION
  Report Type: 
  Country: None (occurrence: None)
  Receive Date: 20110725
  Receipt Date: 20110722
  Transmission Date: 20111222
  Serious: Yes (Death, Congenital Anomaly)
  Sender: FDA-Public Use
  Company Number: FR-ABBOTT-11P-056-0840918-00

PATIENT

DRUGS (2)
  1. TRUVADA [Suspect]
     Indication: MATERNAL EXPOSURE DURING PREGNANCY
     Route: 064
  2. KALETRA [Suspect]
     Indication: MATERNAL EXPOSURE DURING PREGNANCY
     Route: 064

REACTIONS (5)
  - SPINA BIFIDA [None]
  - DILATATION VENTRICULAR [None]
  - MATERNAL EXPOSURE DURING PREGNANCY [None]
  - FOETAL MALFORMATION [None]
  - ABORTION INDUCED [None]
